FAERS Safety Report 11250948 (Version 1)
Quarter: 2015Q3

REPORT INFORMATION
  Report Type: Spontaneous
  Country: US (occurrence: US)
  Receive Date: 20150708
  Receipt Date: 20150708
  Transmission Date: 20151125
  Serious: No
  Sender: FDA-Public Use
  Company Number: US-ELI_LILLY_AND_COMPANY-US201105003385

PATIENT
  Age: 23 Year
  Sex: Female

DRUGS (1)
  1. PROZAC [Suspect]
     Active Substance: FLUOXETINE HYDROCHLORIDE
     Indication: DEPRESSION

REACTIONS (10)
  - Apathy [Unknown]
  - Anxiety [Unknown]
  - Feelings of worthlessness [Unknown]
  - Drug ineffective [Unknown]
  - Mental fatigue [Unknown]
  - Weight increased [Unknown]
  - Social avoidant behaviour [Unknown]
  - Decreased activity [Unknown]
  - Feeling guilty [Unknown]
  - Insomnia [Unknown]
